FAERS Safety Report 20388305 (Version 1)
Quarter: 2022Q1

REPORT INFORMATION
  Report Type: Spontaneous
  Country: US (occurrence: US)
  Receive Date: 20220128
  Receipt Date: 20220128
  Transmission Date: 20220423
  Serious: No
  Sender: FDA-Public Use
  Company Number: US-ALLERGAN-2117917US

PATIENT
  Age: 45 Year
  Sex: Female
  Weight: 76.19 kg

DRUGS (4)
  1. BOTOX [Suspect]
     Active Substance: ONABOTULINUMTOXINA
     Indication: Idiopathic intracranial hypertension
     Dosage: 10 UNITS, SINGLE
     Dates: start: 20210419, end: 20210419
  2. BOTOX [Suspect]
     Active Substance: ONABOTULINUMTOXINA
     Indication: Headache
     Dosage: 15 UNITS, SINGLE
     Dates: start: 20210419, end: 20210419
  3. BOTOX [Suspect]
     Active Substance: ONABOTULINUMTOXINA
     Dosage: 100 UNITS, SINGLE
     Dates: start: 20210419, end: 20210419
  4. UNSPECIFIED INGREDIENT [Concomitant]
     Active Substance: UNSPECIFIED INGREDIENT
     Indication: Hypertension

REACTIONS (19)
  - Intervertebral disc protrusion [Unknown]
  - Swelling face [Recovered/Resolved]
  - Condition aggravated [Unknown]
  - Off label use [Unknown]
  - Influenza like illness [Unknown]
  - Hypertension [Unknown]
  - Productive cough [Unknown]
  - Disorientation [Not Recovered/Not Resolved]
  - Sinusitis [Unknown]
  - Eye swelling [Unknown]
  - Back pain [Unknown]
  - Dizziness postural [Unknown]
  - Confusional state [Not Recovered/Not Resolved]
  - Upper-airway cough syndrome [Recovered/Resolved]
  - Skin swelling [Recovered/Resolved]
  - Dyspnoea [Unknown]
  - Vertigo [Unknown]
  - Hypersensitivity [Unknown]
  - Face oedema [Recovered/Resolved]

NARRATIVE: CASE EVENT DATE: 20210401
